FAERS Safety Report 5409514-9 (Version None)
Quarter: 2007Q3

REPORT INFORMATION
  Report Type: 
  Country: None (occurrence: None)
  Receive Date: 20070808
  Receipt Date: 20070808
  Transmission Date: 20080115
  Serious: Yes (Hospitalization)
  Sender: FDA-Public Use
  Company Number: None

PATIENT
  Age: 48 Year
  Sex: Female
  Weight: 71.2147 kg

DRUGS (3)
  1. CRESTOR [Suspect]
     Indication: DYSLIPIDAEMIA
     Dosage: 1/2 TABLET QDAILY PO
     Route: 048
     Dates: start: 20070301, end: 20070712
  2. XOPENEX HFA [Concomitant]
  3. ZITHROMAX [Concomitant]

REACTIONS (4)
  - CONTUSION [None]
  - PLATELET COUNT DECREASED [None]
  - RASH [None]
  - UPPER RESPIRATORY TRACT INFECTION [None]
